FAERS Safety Report 9530052 (Version 2)
Quarter: 2014Q1

REPORT INFORMATION
  Report Type: Spontaneous
  Country: DK (occurrence: CA)
  Receive Date: 20130917
  Receipt Date: 20140123
  Transmission Date: 20141002
  Serious: Yes (Life-Threatening, Hospitalization, Disabling)
  Sender: FDA-Public Use
  Company Number: CA-FRI-1000048778

PATIENT
  Age: 77 Year
  Sex: Female
  Weight: 82 kg

DRUGS (2)
  1. ESCITALOPRAM [Suspect]
     Indication: HYPERTENSION
     Dosage: 10 MG
     Route: 048
  2. NORVASC [Concomitant]
     Indication: HYPERTENSION
     Dosage: 5 MG
     Route: 048

REACTIONS (19)
  - Loss of consciousness [Recovered/Resolved]
  - Convulsion [Recovered/Resolved]
  - Wrist fracture [Recovered/Resolved]
  - Urinary incontinence [Recovered/Resolved]
  - Confusional state [Recovered/Resolved]
  - Coordination abnormal [Recovered/Resolved]
  - Yellow skin [Recovered/Resolved]
  - Pharyngeal disorder [Recovered/Resolved]
  - Dyspnoea [Recovered/Resolved]
  - Urinary retention [Recovered/Resolved]
  - Musculoskeletal stiffness [Recovered/Resolved]
  - Agitation [Recovered/Resolved]
  - Asthenia [Recovered/Resolved]
  - Myalgia [Recovered/Resolved]
  - Headache [Recovered/Resolved]
  - Fatigue [Recovered/Resolved]
  - Arthralgia [Not Recovered/Not Resolved]
  - Joint stiffness [Not Recovered/Not Resolved]
  - Off label use [Recovered/Resolved]
